FAERS Safety Report 5122655-9 (Version None)
Quarter: 2006Q4

REPORT INFORMATION
  Report Type: 
  Country: None (occurrence: None)
  Receive Date: 20061004
  Receipt Date: 20060921
  Transmission Date: 20070319
  Serious: Yes (Other)
  Sender: FDA-Public Use
  Company Number: 02100-JPN-06-0338

PATIENT
  Age: 75 Year
  Sex: Male

DRUGS (9)
  1. CILOSTAZOL [Suspect]
     Indication: THROMBOSIS PROPHYLAXIS
     Dosage: 200 MG, ORAL
     Route: 048
     Dates: start: 20060608, end: 20060611
  2. CILOSTAZOL [Suspect]
     Indication: THROMBOSIS PROPHYLAXIS
     Dosage: 200 MG, ORAL
     Route: 048
     Dates: start: 20060619, end: 20060713
  3. TICLOPIDINE HYDROCHLORIDE [Suspect]
     Indication: THROMBOSIS PROPHYLAXIS
     Dosage: 200 MG ORAL
     Route: 048
     Dates: start: 20060608, end: 20060619
  4. ENALAPRIL MALEATE [Concomitant]
  5. APRINDINE HYDROCHLORIDE [Concomitant]
  6. AMLODIPINE BESYLATE [Concomitant]
  7. CARVEDILOL [Concomitant]
  8. ASPIRIN [Concomitant]
  9. LOMESARTAN MEDOXOMIL [Concomitant]

REACTIONS (2)
  - CHOLESTASIS [None]
  - FALSE POSITIVE LABORATORY RESULT [None]
